FAERS Safety Report 20674396 (Version 1)
Quarter: 2022Q2

REPORT INFORMATION
  Report Type: Spontaneous
  Country: US (occurrence: US)
  Receive Date: 20220405
  Receipt Date: 20220405
  Transmission Date: 20220721
  Serious: No
  Sender: FDA-Public Use
  Company Number: US-ORGANON-O2203USA001435

PATIENT
  Sex: Female
  Weight: 77.098 kg

DRUGS (2)
  1. NEXPLANON [Suspect]
     Active Substance: ETONOGESTREL
     Indication: Contraception
     Dosage: 1 IMPLANT
     Route: 059
     Dates: start: 20210826, end: 20220308
  2. ZOLOFT [Concomitant]
     Active Substance: SERTRALINE HYDROCHLORIDE
     Dosage: 50 MILLIGRAM, QD

REACTIONS (3)
  - Headache [Recovering/Resolving]
  - Intermenstrual bleeding [Recovering/Resolving]
  - Device breakage [Recovered/Resolved]

NARRATIVE: CASE EVENT DATE: 20220101
